FAERS Safety Report 9098669 (Version 1)
Quarter: 2013Q1

REPORT INFORMATION
  Report Type: Spontaneous
  Country: US (occurrence: US)
  Receive Date: 20130213
  Receipt Date: 20130213
  Transmission Date: 20140127
  Serious: No
  Sender: FDA-Public Use
  Company Number: US-ALLERGAN-1215706US

PATIENT
  Age: 44 Year
  Sex: Female

DRUGS (4)
  1. LASTACAFT [Suspect]
     Indication: PRODUCT USED FOR UNKNOWN INDICATION
     Dosage: 2 GTT, BID
     Route: 047
     Dates: start: 20120805, end: 20120805
  2. SYNTHROID [Concomitant]
     Indication: HYPOTHYROIDISM
     Dosage: 0.112 MG, UNK
     Route: 048
  3. ZYRTEC [Concomitant]
     Indication: HYPERSENSITIVITY
     Dosage: UNK
     Route: 048
  4. IMMUNOTHERAPY [Concomitant]
     Indication: HYPERSENSITIVITY
     Dosage: 2 SHOTS TWICE PER MONTH

REACTIONS (2)
  - Nausea [Unknown]
  - Headache [Recovered/Resolved]
